FAERS Safety Report 12986492 (Version 1)
Quarter: 2016Q4

REPORT INFORMATION
  Report Type: Spontaneous
  Country: US (occurrence: US)
  Receive Date: 20161129
  Receipt Date: 20161129
  Transmission Date: 20170207
  Serious: Yes (Life-Threatening, Disabling, Other)
  Sender: FDA-Public Use
  Company Number: None

PATIENT
  Age: 24 Year
  Sex: Female
  Weight: 90 kg

DRUGS (5)
  1. BIAXIN [Suspect]
     Active Substance: CLARITHROMYCIN
     Indication: SINUSITIS
     Dosage: ?          QUANTITY:16 TABLET(S);?
     Route: 048
     Dates: start: 20161109, end: 20161121
  2. HONEY AND LEMON [Concomitant]
  3. MUCINEX [Concomitant]
     Active Substance: GUAIFENESIN
  4. GINGER. [Concomitant]
     Active Substance: GINGER
  5. HOMEMADE TEA OF MINT LEAVES [Concomitant]

REACTIONS (5)
  - Vertigo [None]
  - Gait disturbance [None]
  - Fatigue [None]
  - Syncope [None]
  - Disorientation [None]

NARRATIVE: CASE EVENT DATE: 20161110
